FAERS Safety Report 9166343 (Version 2)
Quarter: 2013Q2

REPORT INFORMATION
  Report Type: Spontaneous
  Country: US (occurrence: US)
  Receive Date: 20130315
  Receipt Date: 20130405
  Transmission Date: 20140414
  Serious: Yes (Other)
  Sender: FDA-Public Use
  Company Number: PHEH2013US004447

PATIENT
  Age: 49 Year
  Sex: Male
  Weight: 102.49 kg

DRUGS (12)
  1. TASIGNA [Suspect]
     Indication: CHRONIC MYELOID LEUKAEMIA
     Dosage: 200 MG
     Route: 048
     Dates: start: 20130217, end: 20130222
  2. LISINOPRIL [Concomitant]
     Dosage: 10 MG
  3. FENOFIBRATE [Concomitant]
     Dosage: 48 MG
  4. NAPROXEN SODIUM [Concomitant]
     Dosage: 550 MG
  5. HYDROXYUREA [Concomitant]
     Dosage: 500 MG
  6. FISH OIL [Concomitant]
  7. METAMUCIL [Concomitant]
     Dosage: 0.52 G
  8. TUSSICAPS [Concomitant]
     Dosage: 10-8 MG
  9. ALLOPURINOL [Concomitant]
     Dosage: 100 MG, QD
     Dates: start: 20130128
  10. HYDREN [Concomitant]
     Indication: CHRONIC MYELOID LEUKAEMIA
     Dosage: 500 MG, QD
     Route: 048
     Dates: start: 20130130, end: 20130219
  11. XANAX [Concomitant]
     Indication: ANXIETY
     Dosage: 0.5 MG, UNK
     Dates: start: 20130206, end: 20130221
  12. ALBUTEROL [Concomitant]
     Dosage: 2 DF, UNK
     Dates: start: 20130206

REACTIONS (7)
  - Pancreatic disorder [Recovered/Resolved]
  - Nausea [Recovered/Resolved]
  - Abdominal distension [Recovered/Resolved]
  - Weight decreased [Recovering/Resolving]
  - Lipase increased [Unknown]
  - White blood cell count increased [Unknown]
  - Diarrhoea [Recovered/Resolved]
